FAERS Safety Report 5631994-4 (Version None)
Quarter: 2008Q1

REPORT INFORMATION
  Report Type: 
  Country: None (occurrence: None)
  Receive Date: 20080213
  Receipt Date: 20080130
  Transmission Date: 20080703
  Serious: Yes (Hospitalization)
  Sender: FDA-Public Use
  Company Number: 000043

PATIENT
  Age: 85 Year
  Sex: Female

DRUGS (2)
  1. PLETAL [Suspect]
     Indication: INTERMITTENT CLAUDICATION
     Dosage: 100 MG,BID
     Route: 048
     Dates: start: 20070308
  2. NON-STEROID-ANTIRHEUMATIC-AGENTS (NON-STEROID-ANTIRHEUMATIC-AGENTS) [Suspect]

REACTIONS (2)
  - ABDOMINAL PAIN UPPER [None]
  - FAECES DISCOLOURED [None]
